FAERS Safety Report 7227503-9 (Version None)
Quarter: 2011Q1

REPORT INFORMATION
  Report Type: 
  Country: None (occurrence: None)
  Receive Date: 20110114
  Receipt Date: 20110110
  Transmission Date: 20110831
  Serious: Yes (Life-Threatening, Hospitalization)
  Sender: FDA-Public Use
  Company Number: NL-BRISTOL-MYERS SQUIBB COMPANY-15484595

PATIENT
  Age: 75 Year
  Sex: Female

DRUGS (3)
  1. GEMCITABINE [Suspect]
     Indication: NON-SMALL CELL LUNG CANCER
     Dosage: LAST DOSE ON 14DEC10
     Route: 042
     Dates: start: 20101207
  2. CARBOPLATIN [Suspect]
     Indication: NON-SMALL CELL LUNG CANCER
     Route: 042
     Dates: start: 20101207
  3. CETUXIMAB [Suspect]
     Indication: NON-SMALL CELL LUNG CANCER
     Route: 042
     Dates: start: 20101223

REACTIONS (4)
  - PNEUMONIA [None]
  - MYOCARDIAL ISCHAEMIA [None]
  - ANAEMIA [None]
  - FEBRILE NEUTROPENIA [None]
